FAERS Safety Report 8611948-6 (Version None)
Quarter: 2012Q3

REPORT INFORMATION
  Report Type: 
  Country: None (occurrence: None)
  Receive Date: 20120822
  Receipt Date: 20070916
  Transmission Date: 20120928
  Serious: Yes (Other)
  Sender: FDA-Public Use
  Company Number: CO-PFIZER INC-2012201574

PATIENT
  Age: 61 Year
  Sex: Female

DRUGS (8)
  1. GLIBENCLAMIDE [Concomitant]
     Dosage: 5 MG, 3X/DAY
  2. METFORMIN [Concomitant]
     Dosage: 850 MG, 3X/DAY
  3. OLMESARTAN MEDOXOMIL [Suspect]
     Indication: HYPERTENSION
     Dosage: 20 MG, 1X/DAY
  4. ACCUPRIL [Suspect]
     Indication: HYPERTENSION
     Dosage: 20 MG, 1X/DAY
  5. LIPITOR [Suspect]
     Indication: DYSLIPIDAEMIA
     Dosage: 10 MG, 1X/DAY
  6. LIPITOR [Suspect]
     Dosage: 40 MG, 1X/DAY
  7. AMLODIPINE [Concomitant]
     Dosage: 5 MG, 2X/DAY
  8. METFORMIN [Concomitant]
     Dosage: 850 MG, 1X/DAY

REACTIONS (4)
  - HYPERTENSIVE EMERGENCY [None]
  - HAEMATURIA [None]
  - GLYCOSURIA [None]
  - PROTEINURIA [None]
